FAERS Safety Report 5034829-6 (Version None)
Quarter: 2006Q2

REPORT INFORMATION
  Report Type: 
  Country: None (occurrence: None)
  Receive Date: 20060519
  Receipt Date: 20060302
  Transmission Date: 20061013
  Serious: No
  Sender: FDA-Public Use
  Company Number: TPA2006A00371

PATIENT
  Age: 59 Year
  Sex: Female
  Weight: 56.246 kg

DRUGS (4)
  1. ROZEREM [Suspect]
     Indication: INITIAL INSOMNIA
     Dosage: 8 MG, HS, PER ORAL
     Route: 048
     Dates: start: 20060301
  2. LEXAPRO [Concomitant]
  3. XANAX (ALPRAZOLAM) (0.25 MILLIGRAM) [Concomitant]
  4. PRAVACHOL (PRAVASTATIN SODIUM) (40 MILLIGRAM) [Concomitant]

REACTIONS (2)
  - INSOMNIA [None]
  - THERAPEUTIC RESPONSE UNEXPECTED [None]
